FAERS Safety Report 5381272-6 (Version None)
Quarter: 2007Q3

REPORT INFORMATION
  Report Type: 
  Country: None (occurrence: None)
  Receive Date: 20070702
  Receipt Date: 20060728
  Transmission Date: 20080115
  Serious: Yes (Other)
  Sender: FDA-Public Use
  Company Number: SUS1-2006-00204

PATIENT
  Age: 15 Year
  Sex: Male

DRUGS (3)
  1. PENTASA [Suspect]
     Indication: INFLAMMATORY BOWEL DISEASE
     Dosage: RECTAL
     Route: 054
     Dates: start: 20060101, end: 20060601
  2. AZATHIOPRINE [Concomitant]
  3. INFLIXIMAB (INFLIXIMAB) [Concomitant]

REACTIONS (1)
  - PERICARDITIS [None]
